FAERS Safety Report 5855348-0 (Version None)
Quarter: 2008Q3

REPORT INFORMATION
  Report Type: 
  Country: None (occurrence: None)
  Receive Date: 20080821
  Receipt Date: 20080812
  Transmission Date: 20090109
  Serious: Yes (Death)
  Sender: FDA-Public Use
  Company Number: 2008AL006067

PATIENT
  Age: 78 Year
  Sex: Male

DRUGS (1)
  1. DIGOXIN [Suspect]
     Dosage: 0.25 MG DAILY PO
     Route: 048
     Dates: end: 20080208

REACTIONS (5)
  - CLOSTRIDIAL INFECTION [None]
  - FUNGAL INFECTION [None]
  - HEART RATE DECREASED [None]
  - RENAL FAILURE [None]
  - SEPSIS [None]
